FAERS Safety Report 5520642-X (Version None)
Quarter: 2007Q4

REPORT INFORMATION
  Report Type: 
  Country: None (occurrence: None)
  Receive Date: 20071119
  Receipt Date: 20071114
  Transmission Date: 20080405
  Serious: Yes (Death)
  Sender: FDA-Public Use
  Company Number: JP-AVENTIS-200712688JP

PATIENT
  Age: 77 Year
  Sex: Male
  Weight: 45.7 kg

DRUGS (15)
  1. TARGOCID [Suspect]
     Route: 041
     Dates: start: 20070701, end: 20070701
  2. TARGOCID [Suspect]
     Route: 041
     Dates: start: 20070702, end: 20070714
  3. LASIX [Suspect]
     Indication: HYPERTENSION
     Route: 048
     Dates: start: 20070623, end: 20070719
  4. DICHLOTRIDE [Suspect]
     Indication: HYPERTENSION
     Route: 048
     Dates: start: 20070720, end: 20071005
  5. OLMETEC [Concomitant]
     Indication: HYPERTENSION
     Route: 048
     Dates: start: 20070623, end: 20070719
  6. CALBLOCK [Concomitant]
     Indication: HYPERTENSION
     Route: 048
     Dates: start: 20070623, end: 20070719
  7. TANATRIL [Concomitant]
     Indication: HYPERTENSION
     Route: 048
     Dates: start: 20070623, end: 20070719
  8. MECLOCELIN [Concomitant]
     Indication: PNEUMONIA
     Route: 048
     Dates: start: 20070623, end: 20071005
  9. SELIS [Concomitant]
     Indication: HYPERTENSION
     Route: 048
     Dates: start: 20070720, end: 20071005
  10. UNASYN ORAL                        /00903601/ [Concomitant]
     Indication: PNEUMONIA
     Route: 048
     Dates: start: 20070724, end: 20070730
  11. CEFZON [Concomitant]
     Indication: PNEUMONIA
     Route: 048
     Dates: start: 20070808, end: 20070812
  12. ISHIMET [Concomitant]
     Route: 048
     Dates: start: 20070907, end: 20071005
  13. AMANTADINE HYDROCHLORIDE [Concomitant]
     Indication: PARKINSON'S DISEASE
     Route: 048
     Dates: start: 20070911, end: 20071001
  14. AMANTADINE HYDROCHLORIDE [Concomitant]
     Route: 048
     Dates: start: 20071002, end: 20071005
  15. MODACIN [Concomitant]
     Indication: PNEUMONIA
     Route: 042
     Dates: start: 20070621, end: 20070630

REACTIONS (1)
  - RENAL FAILURE ACUTE [None]
